FAERS Safety Report 13639918 (Version 1)
Quarter: 2017Q2

REPORT INFORMATION
  Report Type: Spontaneous
  Country: US (occurrence: US)
  Receive Date: 20170609
  Receipt Date: 20170609
  Transmission Date: 20170830
  Serious: No
  Sender: FDA-Public Use
  Company Number: US-ROCHE-727753

PATIENT
  Sex: Female

DRUGS (3)
  1. KLONOPIN [Suspect]
     Active Substance: CLONAZEPAM
     Dosage: DOSAGE REDUCED SLOWLY OVER TIME  AND THEN DISCONTINUED
     Route: 065
  2. KLONOPIN [Suspect]
     Active Substance: CLONAZEPAM
     Dosage: RESTARTED
     Route: 065
  3. KLONOPIN [Suspect]
     Active Substance: CLONAZEPAM
     Indication: RESTLESS LEGS SYNDROME
     Route: 065

REACTIONS (6)
  - Unevaluable event [Recovered/Resolved]
  - Unevaluable event [Unknown]
  - Muscle twitching [Recovered/Resolved]
  - Insomnia [Recovered/Resolved]
  - Thinking abnormal [Recovered/Resolved]
  - Aphasia [Recovered/Resolved]
